FAERS Safety Report 4986872-0 (Version None)
Quarter: 2006Q2

REPORT INFORMATION
  Report Type: 
  Country: None (occurrence: None)
  Receive Date: 20060428
  Receipt Date: 20060210
  Transmission Date: 20061013
  Serious: Yes (Hospitalization, Other)
  Sender: FDA-Public Use
  Company Number: US-ABBOTT-06P-163-0324636-00

PATIENT
  Sex: Male
  Weight: 79.45 kg

DRUGS (1)
  1. HUMIRA [Suspect]
     Indication: ANKYLOSING SPONDYLITIS
     Route: 058
     Dates: start: 20060101, end: 20060201

REACTIONS (4)
  - DYSPNOEA [None]
  - IMMUNE SYSTEM DISORDER [None]
  - LOWER RESPIRATORY TRACT INFECTION [None]
  - MYCOBACTERIUM CHELONEI INFECTION [None]
